FAERS Safety Report 22057162 (Version 1)
Quarter: 2023Q1

REPORT INFORMATION
  Report Type: Spontaneous
  Country: CN (occurrence: CN)
  Receive Date: 20230303
  Receipt Date: 20230303
  Transmission Date: 20230417
  Serious: No
  Sender: FDA-Public Use
  Company Number: None

PATIENT
  Age: 38 Year
  Sex: Male

DRUGS (7)
  1. MYCOPHENOLATE MOFETIL [Suspect]
     Active Substance: MYCOPHENOLATE MOFETIL
     Indication: Immunosuppressant drug therapy
     Dosage: UNK
     Route: 065
     Dates: start: 2021, end: 2021
  2. TACROLIMUS [Suspect]
     Active Substance: TACROLIMUS
     Indication: Immunosuppressant drug therapy
     Dosage: UNK
     Route: 065
     Dates: start: 2021, end: 2021
  3. PREDNISONE [Suspect]
     Active Substance: PREDNISONE
     Indication: Immunosuppressant drug therapy
     Dosage: UNK
     Route: 065
     Dates: start: 2021, end: 2021
  4. CYCLOPHOSPHAMIDE [Concomitant]
     Active Substance: CYCLOPHOSPHAMIDE
     Indication: Immunosuppressant drug therapy
     Dosage: 6 GRAM, QD (TOTAL)
     Route: 065
     Dates: start: 2021
  5. ROXADUSTAT [Concomitant]
     Active Substance: ROXADUSTAT
     Indication: Anaemia
     Dosage: 100 MILLIGRAM
     Route: 065
     Dates: start: 201907, end: 201909
  6. ROXADUSTAT [Concomitant]
     Active Substance: ROXADUSTAT
     Dosage: 150 MILLIGRAM
     Route: 065
     Dates: start: 201909, end: 202006
  7. ROXADUSTAT [Concomitant]
     Active Substance: ROXADUSTAT
     Dosage: 200 MILLIGRAM
     Route: 065
     Dates: start: 202006

REACTIONS (3)
  - Hepatic function abnormal [Unknown]
  - Herpes zoster [Unknown]
  - Urinary tract infection [Unknown]

NARRATIVE: CASE EVENT DATE: 20210101
